FAERS Safety Report 12579622 (Version 2)
Quarter: 2016Q3

REPORT INFORMATION
  Report Type: Spontaneous
  Country: US (occurrence: US)
  Receive Date: 20160721
  Receipt Date: 20160825
  Transmission Date: 20161109
  Serious: No
  Sender: FDA-Public Use
  Company Number: GXBR2016US002144

PATIENT
  Sex: Female

DRUGS (1)
  1. ATENOLOL TABLETS USP [Suspect]
     Active Substance: ATENOLOL
     Indication: HYPERTENSION
     Dosage: UNK DF, UNK
     Route: 065

REACTIONS (2)
  - Aura [Recovering/Resolving]
  - Blood pressure increased [Recovering/Resolving]
